FAERS Safety Report 9264271 (Version 3)
Quarter: 2013Q4

REPORT INFORMATION
  Report Type: Spontaneous
  Country: ES (occurrence: ES)
  Receive Date: 20130430
  Receipt Date: 20131009
  Transmission Date: 20140711
  Serious: Yes (Other)
  Sender: FDA-Public Use
  Company Number: ES-VERTEX PHARMACEUTICALS INC-2013-005571

PATIENT
  Sex: Male
  Weight: 75 kg

DRUGS (5)
  1. INCIVO [Suspect]
     Indication: HEPATITIS C
     Dosage: 2250 MG, QD
     Route: 048
     Dates: start: 20130219, end: 201304
  2. RIBAVIRIN [Suspect]
     Indication: HEPATITIS C
     Dosage: 1000 MG, UNK
     Route: 065
     Dates: start: 20130219, end: 20130305
  3. RIBAVIRIN [Suspect]
     Dosage: 800 MG, UNK
     Route: 065
     Dates: start: 20130305, end: 20130325
  4. RIBAVIRIN [Suspect]
     Dosage: 600 MG, UNK
     Route: 065
     Dates: start: 20130325
  5. INTERFERON ALFA [Suspect]
     Indication: HEPATITIS C
     Dosage: DOSAGE FORM: UNSPECIFIED
     Route: 065
     Dates: start: 20130219

REACTIONS (4)
  - Pyrexia [Recovered/Resolved]
  - Blister [Unknown]
  - Rash [Recovered/Resolved]
  - Anaemia [Unknown]
